FAERS Safety Report 8115756-4 (Version None)
Quarter: 2012Q1

REPORT INFORMATION
  Report Type: 
  Country: None (occurrence: None)
  Receive Date: 20120201
  Receipt Date: 20120122
  Transmission Date: 20120608
  Serious: Yes (Death)
  Sender: FDA-Public Use
  Company Number: B0776911A

PATIENT
  Age: 71 Year
  Sex: Female
  Weight: 74.8435 kg

DRUGS (2)
  1. RANITIDINE HYDROCHLORIDE [Suspect]
     Indication: ABDOMINAL PAIN UPPER
     Dosage: INTRAVENOUS
     Route: 042
     Dates: start: 20111108, end: 20111108
  2. DEXAMETHASONE [Concomitant]

REACTIONS (4)
  - ANAPHYLACTIC SHOCK [None]
  - PALPITATIONS [None]
  - PRODUCT QUALITY ISSUE [None]
  - FEAR [None]
